FAERS Safety Report 6448950 (Version 3)
Quarter: 2021Q1

REPORT INFORMATION
  Report Type: Spontaneous
  Country: CH (occurrence: CH)
  Receive Date: 20071024
  Receipt Date: 20210121
  Transmission Date: 20210420
  Serious: Yes (Other)
  Sender: FDA-Public Use
  Company Number: CH-PFIZER INC-2007086608

PATIENT
  Age: 16 Year
  Sex: Male
  Weight: 76 kg

DRUGS (5)
  1. ZYPREXA [Suspect]
     Active Substance: OLANZAPINE
     Dosage: 15 MG, 1X/DAY
  2. SERTRALINE HCL [Suspect]
     Active Substance: SERTRALINE HYDROCHLORIDE
     Indication: OBSESSIVE-COMPULSIVE DISORDER
     Dosage: 75 MG, 1X/DAY
     Route: 048
     Dates: start: 200401
  3. ZYPREXA [Suspect]
     Active Substance: OLANZAPINE
     Dosage: 20 MG, 1X/DAY
     Dates: start: 20050520
  4. ZYPREXA [Suspect]
     Active Substance: OLANZAPINE
     Dosage: 10 MG, 1X/DAY
  5. ZYPREXA [Suspect]
     Active Substance: OLANZAPINE
     Indication: PERSONALITY DISORDER
     Dosage: 10 MG, 1X/DAY
     Route: 048
     Dates: start: 200412

REACTIONS (13)
  - Psychomotor skills impaired [Unknown]
  - Akathisia [Recovered/Resolved]
  - Dyspepsia [Unknown]
  - Hypomania [Unknown]
  - Muscle spasms [Unknown]
  - Condition aggravated [Recovered/Resolved]
  - Blepharospasm [Recovered/Resolved]
  - Tension [Unknown]
  - Tremor [Recovered/Resolved]
  - Conjunctivitis [Recovered/Resolved]
  - Restlessness [Unknown]
  - Dry eye [Unknown]
  - Drug ineffective [Recovered/Resolved]

NARRATIVE: CASE EVENT DATE: 200412
